FAERS Safety Report 4390351-1 (Version None)
Quarter: 2004Q2

REPORT INFORMATION
  Report Type: 
  Country: None (occurrence: None)
  Receive Date: 20040630
  Receipt Date: 20040624
  Transmission Date: 20050107
  Serious: Yes (Death)
  Sender: FDA-Public Use
  Company Number: HQ4641915OCT2002

PATIENT
  Sex: Male

DRUGS (1)
  1. TAZOCIN         (PIPERACILLIN/TAZOBACTAM, INJECTION) [Suspect]
     Indication: URINARY TRACT INFECTION
     Dosage: INTRAVENOUS DRIP
     Route: 041
     Dates: start: 20020101, end: 20020101

REACTIONS (1)
  - INTERSTITIAL LUNG DISEASE [None]
